FAERS Safety Report 25618003 (Version 1)
Quarter: 2025Q3

REPORT INFORMATION
  Report Type: Spontaneous
  Country: US (occurrence: None)
  Receive Date: 20250729
  Receipt Date: 20250729
  Transmission Date: 20251021
  Serious: Yes (Hospitalization)
  Sender: FDA-CTU
  Company Number: None

PATIENT
  Age: 32 Year
  Sex: Female

DRUGS (1)
  1. KISQALI [Suspect]
     Active Substance: RIBOCICLIB SUCCINATE
     Dosage: 400 MG ONCE DAILY 21 DAYS ON 7 DAYS O?

REACTIONS (1)
  - Impaired healing [None]
